FAERS Safety Report 6873877-8 (Version None)
Quarter: 2010Q3

REPORT INFORMATION
  Report Type: 
  Country: None (occurrence: None)
  Receive Date: 20100723
  Receipt Date: 20090512
  Transmission Date: 20110219
  Serious: No
  Sender: FDA-Public Use
  Company Number: US-PFIZER INC-2009188092

PATIENT
  Sex: Female
  Weight: 68.038 kg

DRUGS (3)
  1. CHANTIX [Suspect]
     Indication: SMOKING CESSATION THERAPY
     Dosage: 1 MG, 2X/DAY
     Dates: start: 20080301
  2. SYNTHROID [Concomitant]
     Dosage: UNK
  3. PRENATAL VITAMINS [Concomitant]
     Dosage: UNK

REACTIONS (3)
  - DYSGEUSIA [None]
  - PAROSMIA [None]
  - WEIGHT DECREASED [None]
